FAERS Safety Report 4407185-1 (Version None)
Quarter: 2004Q3

REPORT INFORMATION
  Report Type: 
  Country: None (occurrence: None)
  Receive Date: 20040721
  Receipt Date: 20040712
  Transmission Date: 20050211
  Serious: Yes (Hospitalization)
  Sender: FDA-Public Use
  Company Number: 2004-07-0474

PATIENT
  Age: 66 Year
  Sex: Female

DRUGS (1)
  1. INTRON A [Suspect]
     Dosage: 9 MIU TIW

REACTIONS (1)
  - CARDIAC DISORDER [None]
